FAERS Safety Report 16679150 (Version 2)
Quarter: 2019Q3

REPORT INFORMATION
  Report Type: Spontaneous
  Country: IT (occurrence: IT)
  Receive Date: 20190807
  Receipt Date: 20190826
  Transmission Date: 20191004
  Serious: Yes (Other)
  Sender: FDA-Public Use
  Company Number: IT-FARMAPROD-201908-1213

PATIENT
  Age: 48 Year
  Sex: Male

DRUGS (1)
  1. OXERVATE [Suspect]
     Active Substance: CENEGERMIN-BKBJ
     Indication: ULCERATIVE KERATITIS
     Route: 057
     Dates: start: 20190606, end: 20190623

REACTIONS (3)
  - Corneal abscess [Recovered/Resolved with Sequelae]
  - Candida infection [Recovered/Resolved with Sequelae]
  - Corneal perforation [Recovered/Resolved with Sequelae]

NARRATIVE: CASE EVENT DATE: 20190623
